FAERS Safety Report 5192372-8 (Version None)
Quarter: 2006Q4

REPORT INFORMATION
  Report Type: 
  Country: None (occurrence: None)
  Receive Date: 20061227
  Receipt Date: 20061214
  Transmission Date: 20070319
  Serious: Yes (Other)
  Sender: FDA-Public Use
  Company Number: US-PFIZER INC-2006154466

PATIENT
  Sex: Female
  Weight: 68 kg

DRUGS (9)
  1. NEURONTIN [Suspect]
     Indication: NEUROMA
  2. CELEBREX [Suspect]
  3. LYRICA [Suspect]
     Indication: PAIN
  4. FLEXERIL [Concomitant]
  5. ALL OTHER THERAPEUTIC PRODUCTS [Concomitant]
  6. FOLIC ACID [Concomitant]
  7. KLONOPIN [Concomitant]
  8. CELEXA [Concomitant]
  9. WELLBUTRIN [Concomitant]

REACTIONS (16)
  - ABDOMINAL PAIN UPPER [None]
  - ARTHRITIS [None]
  - BALANCE DISORDER [None]
  - BURSITIS [None]
  - CONDITION AGGRAVATED [None]
  - CRYING [None]
  - DEPRESSION [None]
  - DIZZINESS [None]
  - DRUG INEFFECTIVE [None]
  - FIBROMYALGIA [None]
  - GAIT DISTURBANCE [None]
  - OSTEOPOROSIS [None]
  - PAIN [None]
  - PROCEDURAL PAIN [None]
  - THERAPY NON-RESPONDER [None]
  - UNDERDOSE [None]
